FAERS Safety Report 6148300-1 (Version None)
Quarter: 2009Q2

REPORT INFORMATION
  Report Type: 
  Country: None (occurrence: None)
  Receive Date: 20090408
  Receipt Date: 20090403
  Transmission Date: 20091009
  Serious: Yes (Death)
  Sender: FDA-Public Use
  Company Number: US-SANOFI-SYNTHELABO-A03200901456

PATIENT
  Sex: Male

DRUGS (2)
  1. PLAVIX [Suspect]
     Indication: ANGIOPLASTY
     Dosage: UNK
     Route: 048
  2. PLAVIX [Suspect]
     Indication: STENT PLACEMENT
     Dosage: UNK
     Route: 048

REACTIONS (10)
  - ASPERGILLOSIS [None]
  - CHILLS [None]
  - DISSEMINATED INTRAVASCULAR COAGULATION [None]
  - HAEMORRHAGE INTRACRANIAL [None]
  - HISTIOCYTOSIS HAEMATOPHAGIC [None]
  - MONONEUROPATHY MULTIPLEX [None]
  - PANCYTOPENIA [None]
  - POLYARTERITIS NODOSA [None]
  - PYREXIA [None]
  - WEIGHT DECREASED [None]
